FAERS Safety Report 24693365 (Version 2)
Quarter: 2024Q4

REPORT INFORMATION
  Report Type: Spontaneous
  Country: RU (occurrence: RU)
  Receive Date: 20241203
  Receipt Date: 20241212
  Transmission Date: 20250115
  Serious: Yes (Other)
  Sender: EMD SERONO INC
  Company Number: RU-Merck Healthcare KGaA-2024063848

PATIENT
  Age: 47 Year
  Sex: Female

DRUGS (4)
  1. MAVENCLAD [Suspect]
     Active Substance: CLADRIBINE
     Indication: Multiple sclerosis
     Dosage: FIRST YEAR FIRST WEEK THERAPY: TWO TABLET ON DAYS 1 TO 3 AND ONE TABLET ON DAYS 4 AND 5
     Dates: start: 2022
  2. MAVENCLAD [Suspect]
     Active Substance: CLADRIBINE
     Dosage: FIRST YEAR SECOND WEEK THERAPY: TWO TABLET ON DAYS 1 AND 2 AND ONE TABLET ON DAYS 3 TO 5
  3. MAVENCLAD [Suspect]
     Active Substance: CLADRIBINE
     Dosage: SECOND YEAR FIRST WEEK THERAPY: TWO TABLET ON DAYS 1 TO 3 AND ONE TABLET ON DAYS 4 AND 5
     Dates: start: 2023
  4. MAVENCLAD [Suspect]
     Active Substance: CLADRIBINE
     Dosage: SECOND YEAR SECOND WEEK THERAPY: TWO TABLET ON DAYS 1 AND 2 AND ONE TABLET ON DAYS 3 TO 5

REACTIONS (1)
  - Uterine leiomyoma [Unknown]
